FAERS Safety Report 25516720 (Version 3)
Quarter: 2025Q3

REPORT INFORMATION
  Report Type: Report from Study
  Country: CA (occurrence: CA)
  Receive Date: 20250704
  Receipt Date: 20250709
  Transmission Date: 20251020
  Serious: Yes (Hospitalization)
  Sender: ABBVIE
  Company Number: CA-ABBVIE-6351906

PATIENT
  Age: 66 Year
  Sex: Female

DRUGS (3)
  1. SKYRIZI [Suspect]
     Active Substance: RISANKIZUMAB-RZAA
     Indication: Crohn^s disease
     Route: 058
  2. SKYRIZI [Suspect]
     Active Substance: RISANKIZUMAB-RZAA
     Indication: Crohn^s disease
     Route: 042
     Dates: start: 20250515, end: 20250515
  3. SKYRIZI [Suspect]
     Active Substance: RISANKIZUMAB-RZAA
     Indication: Crohn^s disease
     Route: 042
     Dates: start: 20250612, end: 20250612

REACTIONS (9)
  - Illness [Unknown]
  - Fistula [Unknown]
  - Retching [Unknown]
  - Nausea [Unknown]
  - Decreased appetite [Unknown]
  - Abscess [Unknown]
  - Diarrhoea [Unknown]
  - Abnormal faeces [Unknown]
  - Malaise [Unknown]

NARRATIVE: CASE EVENT DATE: 20250630
